FAERS Safety Report 18664005 (Version 1)
Quarter: 2020Q4

REPORT INFORMATION
  Report Type: Spontaneous
  Country: US (occurrence: US)
  Receive Date: 20201225
  Receipt Date: 20201225
  Transmission Date: 20210114
  Serious: No
  Sender: FDA-Public Use
  Company Number: US-ASTRAZENECA-2020SF59488

PATIENT
  Sex: Male

DRUGS (1)
  1. SYMBICORT [Suspect]
     Active Substance: BUDESONIDE\FORMOTEROL FUMARATE DIHYDRATE
     Dosage: 160/4.5 MG, AS NEEDED BUT SINCE COVID HE HAS BEEN TRYING TO TAKE IT EVERYDAY AS REQUIRED
     Route: 055

REACTIONS (5)
  - Suspected COVID-19 [Unknown]
  - Wrong technique in device usage process [Unknown]
  - Product dose omission issue [Unknown]
  - Device use issue [Unknown]
  - Drug delivery system malfunction [Unknown]
